FAERS Safety Report 8106019 (Version 2)
Quarter: 2013Q4

REPORT INFORMATION
  Report Type: Spontaneous
  Country: US (occurrence: US)
  Receive Date: 20110825
  Receipt Date: 20131202
  Transmission Date: 20140711
  Serious: Yes (Other)
  Sender: FDA-Public Use
  Company Number: US-BAYER-2011-075564

PATIENT
  Sex: Female

DRUGS (14)
  1. YAZ [Suspect]
     Dosage: UNK
  2. YASMIN [Suspect]
     Dosage: UNK
  3. PROPOXYPHENE NAPSYLATE W/ACETAMINOPHENE [Concomitant]
     Dosage: 100/65, UNK
     Dates: start: 20090909, end: 20091124
  4. TINDAMAX [Concomitant]
     Dosage: 500 MG, UNK
     Dates: start: 20091022
  5. FLUCONAZOLE [Concomitant]
     Dosage: 150 MG, UNK
     Dates: start: 20091027
  6. TERCONAZOLE [Concomitant]
     Dosage: 20 GM, UNK
     Dates: start: 20091102
  7. PHENTERMINE [Concomitant]
     Dosage: 30 MG, UNK
     Dates: start: 20091105
  8. AZITHROMYCIN [Concomitant]
     Dosage: 500 MG, UNK
     Dates: start: 20091105
  9. METRONIDAZOLE [Concomitant]
     Dosage: 70 GM, UNK
     Route: 067
     Dates: start: 20091118
  10. SUMATRIPTAN [Concomitant]
     Dosage: 100 MG, UNK
     Dates: start: 20091124
  11. CLINDAMYCIN [Concomitant]
     Dosage: 40 GM, UNK
     Route: 067
     Dates: start: 20091203
  12. ADVIL MIGRAINE [Concomitant]
     Dosage: 200 MG, PRN
  13. DARVOCET-N [Concomitant]
     Dosage: UNK
  14. IMITREX [Concomitant]

REACTIONS (3)
  - Gallbladder injury [None]
  - Biliary dyskinesia [None]
  - Cholecystitis [None]
